FAERS Safety Report 10120240 (Version 1)
Quarter: 2014Q2

REPORT INFORMATION
  Report Type: Spontaneous
  Country: US (occurrence: US)
  Receive Date: 20140426
  Receipt Date: 20140426
  Transmission Date: 20141212
  Serious: Yes (Life-Threatening, Other)
  Sender: FDA-Public Use
  Company Number: US-JNJFOC-20140411199

PATIENT
  Sex: Male

DRUGS (1)
  1. IMODIUM [Suspect]
     Indication: EUPHORIC MOOD
     Dosage: 400 PILLS
     Route: 048

REACTIONS (3)
  - Apparent death [Unknown]
  - Overdose [Unknown]
  - Intentional product misuse [Unknown]
